FAERS Safety Report 6620630-6 (Version None)
Quarter: 2010Q1

REPORT INFORMATION
  Report Type: 
  Country: None (occurrence: None)
  Receive Date: 20100309
  Receipt Date: 20100302
  Transmission Date: 20100710
  Serious: Yes (Other)
  Sender: FDA-Public Use
  Company Number: JP-PFIZER INC-2010027955

PATIENT

DRUGS (1)
  1. XALATAN [Suspect]
     Dosage: 1 GTT, 1X/DAY

REACTIONS (3)
  - ARTHRALGIA [None]
  - MYALGIA [None]
  - UPPER RESPIRATORY TRACT INFECTION [None]
